FAERS Safety Report 4723162-5 (Version None)
Quarter: 2005Q3

REPORT INFORMATION
  Report Type: 
  Country: None (occurrence: None)
  Receive Date: 20050719
  Receipt Date: 20040804
  Transmission Date: 20060218
  Serious: Yes (Other)
  Sender: FDA-Public Use
  Company Number: 2004226994US

PATIENT
  Sex: 0

DRUGS (2)
  1. CELEBREX [Suspect]
     Route: 065
  2. CORTICOSTEROIDS [Concomitant]

REACTIONS (1)
  - STEVENS-JOHNSON SYNDROME [None]
